FAERS Safety Report 6790423-8 (Version None)
Quarter: 2010Q2

REPORT INFORMATION
  Report Type: 
  Country: None (occurrence: None)
  Receive Date: 20100624
  Receipt Date: 20090910
  Transmission Date: 20101027
  Serious: Yes (Life-Threatening, Hospitalization, Other)
  Sender: FDA-Public Use
  Company Number: FR-ROCHE-584875

PATIENT
  Sex: Male

DRUGS (6)
  1. CAPECITABINE [Suspect]
     Indication: METASTATIC GASTRIC CANCER
     Route: 048
     Dates: start: 20080211, end: 20080221
  2. CAPECITABINE [Suspect]
     Dosage: DOSE RECEIVED : 75 %.
     Route: 048
     Dates: start: 20080328
  3. FARMORUBICINE [Suspect]
     Indication: METASTATIC GASTRIC CANCER
     Route: 042
     Dates: start: 20080211
  4. FARMORUBICINE [Suspect]
     Dosage: DOSE RECEIVED: 75%
     Route: 042
     Dates: start: 20080328
  5. CISPLATIN [Suspect]
     Indication: METASTATIC GASTRIC CANCER
     Route: 042
     Dates: start: 20080211
  6. CISPLATIN [Suspect]
     Dosage: DOSE RECEIVED: 50%
     Route: 042
     Dates: start: 20080328

REACTIONS (7)
  - APLASIA [None]
  - DEHYDRATION [None]
  - DIARRHOEA [None]
  - FEBRILE NEUTROPENIA [None]
  - GENERAL PHYSICAL HEALTH DETERIORATION [None]
  - LUNG INFECTION [None]
  - NEUTROPENIA [None]
